FAERS Safety Report 25716029 (Version 3)
Quarter: 2025Q3

REPORT INFORMATION
  Report Type: Report from Study
  Country: US (occurrence: US)
  Receive Date: 20250822
  Receipt Date: 20250922
  Transmission Date: 20251021
  Serious: Yes (Other)
  Sender: pharmaAND
  Company Number: US-Pharmaand-2025000228

PATIENT
  Age: 68 Year
  Sex: Female

DRUGS (4)
  1. RUBRACA [Suspect]
     Active Substance: RUCAPARIB CAMSYLATE
     Indication: Pancreatic carcinoma
     Dosage: 300MG 2 TABLETS BY MOUTH TWICE DAILY
     Route: 048
     Dates: start: 20250220
  2. RUBRACA [Suspect]
     Active Substance: RUCAPARIB CAMSYLATE
     Indication: Pancreatic carcinoma
     Dosage: 300MG 1 TABLET TWICE DAILY
     Route: 048
  3. RUBRACA [Suspect]
     Active Substance: RUCAPARIB CAMSYLATE
     Indication: Pancreatic carcinoma
     Dosage: 300MG 2 TABLETS TWICE DAILY
     Route: 048
  4. RUBRACA [Suspect]
     Active Substance: RUCAPARIB CAMSYLATE
     Indication: Pancreatic carcinoma
     Dosage: 1 TABLET IN THE MORNING AND 1 IN THE EVENING
     Route: 048
     Dates: start: 20250907

REACTIONS (12)
  - Full blood count decreased [Unknown]
  - Fatigue [Unknown]
  - Diarrhoea [Unknown]
  - Gastrooesophageal reflux disease [Unknown]
  - Dysphagia [Unknown]
  - Retching [Unknown]
  - Vomiting [Unknown]
  - Nausea [Unknown]
  - Depressed mood [Unknown]
  - Product dose omission issue [Recovered/Resolved]
  - Off label use [Recovered/Resolved]
  - Intentional product misuse [Recovered/Resolved]

NARRATIVE: CASE EVENT DATE: 20250907
